FAERS Safety Report 14924842 (Version 1)
Quarter: 2018Q2

REPORT INFORMATION
  Report Type: Spontaneous
  Country: US (occurrence: US)
  Receive Date: 20180522
  Receipt Date: 20180522
  Transmission Date: 20180711
  Serious: No
  Sender: FDA-Public Use
  Company Number: US-MEDIMETRIKS-2017-US-012367

PATIENT
  Age: 68 Year
  Sex: Female

DRUGS (2)
  1. VITAL REDS [Concomitant]
  2. FLUOCINOLONE ACETONIDE CREAM 0.01% 15G [Suspect]
     Active Substance: FLUOCINOLONE ACETONIDE
     Indication: DRY SKIN
     Dosage: TWICE DAILY
     Route: 061
     Dates: start: 20171017

REACTIONS (2)
  - Dry skin [Not Recovered/Not Resolved]
  - Skin burning sensation [Not Recovered/Not Resolved]

NARRATIVE: CASE EVENT DATE: 20171018
